FAERS Safety Report 11078478 (Version 7)
Quarter: 2018Q1

REPORT INFORMATION
  Report Type: Report from Study
  Country: BR (occurrence: BR)
  Receive Date: 20150430
  Receipt Date: 20180312
  Transmission Date: 20180508
  Serious: Yes (Hospitalization, Other)
  Sender: FDA-Public Use
  Company Number: PHHY2015BR050725

PATIENT
  Age: 50 Year
  Sex: Female
  Weight: 60 kg

DRUGS (8)
  1. EXJADE [Suspect]
     Active Substance: DEFERASIROX
     Dosage: 4 DF, QD
     Route: 048
  2. TRAMAL [Concomitant]
     Active Substance: TRAMADOL
     Indication: PAIN
     Dosage: 1 DF, Q6H (IF STRONG PAIN 1 DF Q4H)
     Route: 048
  3. EXJADE [Suspect]
     Active Substance: DEFERASIROX
     Dosage: 1500 MG, (3 DISPER. TAB. OF 500MG) QD
     Route: 048
  4. EXJADE [Suspect]
     Active Substance: DEFERASIROX
     Indication: SICKLE CELL ANAEMIA
     Dosage: 25 MG/KG, (3 DF OF 500 MG), QD (30 MINUTES BEFORE LUNCH)
     Route: 048
     Dates: start: 2007
  5. EXJADE [Suspect]
     Active Substance: DEFERASIROX
     Dosage: 15 MG/KG (2 DF OF 500 MG), QD
     Route: 048
     Dates: end: 201503
  6. EXJADE [Suspect]
     Active Substance: DEFERASIROX
     Dosage: 15 MG/KG (2 DF OF 500 MG), QD
     Route: 048
  7. HYDREA [Concomitant]
     Active Substance: HYDROXYUREA
     Indication: SICKLE CELL ANAEMIA
     Dosage: 2 DF OF 500 MG, QD
     Route: 048
     Dates: start: 2002
  8. FOLIC ACID. [Concomitant]
     Active Substance: FOLIC ACID
     Indication: SICKLE CELL ANAEMIA
     Dosage: 1 DF, QD
     Route: 048

REACTIONS (21)
  - Dysstasia [Recovering/Resolving]
  - Back pain [Recovered/Resolved]
  - Headache [Recovering/Resolving]
  - Sickle cell anaemia with crisis [Recovering/Resolving]
  - Fatigue [Recovering/Resolving]
  - Dyspnoea [Recovering/Resolving]
  - Influenza [Unknown]
  - Full blood count decreased [Not Recovered/Not Resolved]
  - Kidney infection [Recovered/Resolved]
  - Klebsiella infection [Unknown]
  - Nasopharyngitis [Unknown]
  - Asthenia [Recovering/Resolving]
  - Peripheral swelling [Recovering/Resolving]
  - Arthralgia [Recovering/Resolving]
  - Faeces soft [Recovering/Resolving]
  - Contusion [Recovering/Resolving]
  - Abdominal pain [Recovering/Resolving]
  - Heart rate increased [Recovering/Resolving]
  - Escherichia infection [Unknown]
  - Pain in extremity [Recovering/Resolving]
  - Blood iron increased [Recovering/Resolving]

NARRATIVE: CASE EVENT DATE: 20150406
